FAERS Safety Report 9678019 (Version 1)
Quarter: 2013Q4

REPORT INFORMATION
  Report Type: Spontaneous
  Country: US (occurrence: US)
  Receive Date: 20131108
  Receipt Date: 20131108
  Transmission Date: 20140711
  Serious: Yes (Other)
  Sender: FDA-Public Use
  Company Number: US-BAYER-2013-136281

PATIENT
  Age: 40 Year
  Sex: Female
  Weight: 79.37 kg

DRUGS (2)
  1. BETASERON [Suspect]
     Dosage: 1 ML, QOD
     Route: 058
  2. AMPYRA [Concomitant]
     Dosage: 10 MG, UNK

REACTIONS (1)
  - Multiple sclerosis [Unknown]
